FAERS Safety Report 15028149 (Version 3)
Quarter: 2019Q3

REPORT INFORMATION
  Report Type: Spontaneous
  Country: US (occurrence: US)
  Receive Date: 20180619
  Receipt Date: 20190814
  Transmission Date: 20191004
  Serious: Yes (Hospitalization)
  Sender: FDA-Public Use
  Company Number: PHHY2018US018905

PATIENT
  Age: 79 Year
  Sex: Female

DRUGS (3)
  1. HYDROXYCHLOROQUINE [Concomitant]
     Active Substance: HYDROXYCHLOROQUINE
     Indication: RHEUMATOID ARTHRITIS
     Route: 065
  2. PREDNISONE. [Concomitant]
     Active Substance: PREDNISONE
     Indication: RHEUMATOID ARTHRITIS
     Route: 065
  3. METHOTREXATE. [Suspect]
     Active Substance: METHOTREXATE
     Indication: RHEUMATOID ARTHRITIS
     Dosage: 25 MG, QW
     Route: 048

REACTIONS (5)
  - Respiratory failure [Unknown]
  - Pleurisy [Unknown]
  - Pneumothorax [Recovered/Resolved]
  - Bronchopleural fistula [Recovered/Resolved]
  - Combined pulmonary fibrosis and emphysema [Unknown]

NARRATIVE: CASE EVENT DATE: 20170623
